FAERS Safety Report 12911795 (Version 4)
Quarter: 2017Q2

REPORT INFORMATION
  Report Type: Spontaneous
  Country: CA (occurrence: CA)
  Receive Date: 20161104
  Receipt Date: 20170530
  Transmission Date: 20170830
  Serious: Yes (Other)
  Sender: FDA-Public Use
  Company Number: CA-ORION CORPORATION ORION PHARMA-TREX2016-0489

PATIENT
  Age: 59 Year
  Sex: Male

DRUGS (5)
  1. METHOTREXATE (TRADE NAME UNKNOWN) [Suspect]
     Active Substance: METHOTREXATE
     Route: 065
     Dates: start: 20160603
  2. XELJANZ [Suspect]
     Active Substance: TOFACITINIB CITRATE
     Indication: RHEUMATOID ARTHRITIS
     Route: 048
     Dates: start: 20150715, end: 20160507
  3. PLAQUENIL [Concomitant]
     Active Substance: HYDROXYCHLOROQUINE SULFATE
     Route: 065
  4. XELJANZ [Suspect]
     Active Substance: TOFACITINIB CITRATE
     Route: 048
     Dates: start: 20160603
  5. METHOTREXATE (TRADE NAME UNKNOWN) [Suspect]
     Active Substance: METHOTREXATE
     Indication: RHEUMATOID ARTHRITIS
     Route: 065
     Dates: end: 20160507

REACTIONS (29)
  - Weight decreased [Not Recovered/Not Resolved]
  - Muscle spasms [Not Recovered/Not Resolved]
  - Fatigue [Recovered/Resolved]
  - Nasal congestion [Not Recovered/Not Resolved]
  - Pruritus [Recovered/Resolved]
  - Gait disturbance [Not Recovered/Not Resolved]
  - Diarrhoea [Not Recovered/Not Resolved]
  - Dysstasia [Not Recovered/Not Resolved]
  - Hypoaesthesia [Not Recovered/Not Resolved]
  - Back pain [Recovering/Resolving]
  - Pain in extremity [Not Recovered/Not Resolved]
  - Ear discomfort [Unknown]
  - Gastric disorder [Not Recovered/Not Resolved]
  - Feeding disorder [Not Recovered/Not Resolved]
  - Nodule [Not Recovered/Not Resolved]
  - Chest pain [Recovering/Resolving]
  - Oropharyngeal pain [Recovering/Resolving]
  - Bursitis [Recovering/Resolving]
  - Constipation [Not Recovered/Not Resolved]
  - Lower respiratory tract infection [Recovered/Resolved]
  - Abdominal pain upper [Recovering/Resolving]
  - Headache [Not Recovered/Not Resolved]
  - Rash macular [Recovering/Resolving]
  - Increased tendency to bruise [Not Recovered/Not Resolved]
  - Vein disorder [Not Recovered/Not Resolved]
  - Ear infection [Recovered/Resolved]
  - Arthralgia [Recovering/Resolving]
  - Abdominal pain lower [Not Recovered/Not Resolved]
  - Paraesthesia [Not Recovered/Not Resolved]

NARRATIVE: CASE EVENT DATE: 2015
